FAERS Safety Report 10620420 (Version 2)
Quarter: 2014Q4

REPORT INFORMATION
  Report Type: Report from Study
  Country: US (occurrence: US)
  Receive Date: 20141202
  Receipt Date: 20141202
  Transmission Date: 20150529
  Serious: Yes (Other)
  Sender: FDA-Public Use
  Company Number: US-SA-2014SA134869

PATIENT
  Age: 55 Year
  Sex: Female

DRUGS (1)
  1. AUBAGIO [Suspect]
     Active Substance: TERIFLUNOMIDE
     Indication: MULTIPLE SCLEROSIS
     Route: 048
     Dates: start: 20140907, end: 20141001

REACTIONS (5)
  - Nephrolithiasis [Unknown]
  - Vomiting [Unknown]
  - Back pain [Unknown]
  - Condition aggravated [Unknown]
  - Thirst [Unknown]

NARRATIVE: CASE EVENT DATE: 201409
